FAERS Safety Report 19349227 (Version 1)
Quarter: 2021Q2

REPORT INFORMATION
  Report Type: Spontaneous
  Country: US (occurrence: US)
  Receive Date: 20210529
  Receipt Date: 20210529
  Transmission Date: 20210717
  Serious: Yes (Other)
  Sender: FDA-Public Use
  Company Number: None

PATIENT
  Age: 58 Year
  Sex: Male
  Weight: 72.45 kg

DRUGS (7)
  1. ATORVASTATIN [Concomitant]
     Active Substance: ATORVASTATIN
  2. VITAMINS COMPLEX [Concomitant]
  3. ORGANIC MILK THISTLE [Concomitant]
  4. VASCEPA [Concomitant]
     Active Substance: ICOSAPENT ETHYL
  5. BIKTARVY [Suspect]
     Active Substance: BICTEGRAVIR SODIUM\EMTRICITABINE\TENOFOVIR ALAFENAMIDE FUMARATE
     Indication: HIV INFECTION
     Dosage: ?          QUANTITY:1 TABLET(S);?
     Route: 048
     Dates: start: 20180430
  6. LOSARTAN. [Concomitant]
     Active Substance: LOSARTAN
  7. VITAMINS [Concomitant]
     Active Substance: VITAMINS

REACTIONS (7)
  - Blood cholesterol increased [None]
  - Hypertension [None]
  - Renal mass [None]
  - Laboratory test abnormal [None]
  - Hepatic steatosis [None]
  - Blood triglycerides increased [None]
  - Headache [None]

NARRATIVE: CASE EVENT DATE: 20210525
